FAERS Safety Report 5255158-1 (Version None)
Quarter: 2007Q1

REPORT INFORMATION
  Report Type: 
  Country: None (occurrence: None)
  Receive Date: 20070305
  Receipt Date: 20070226
  Transmission Date: 20070707
  Serious: Yes (Other)
  Sender: FDA-Public Use
  Company Number: US-AVENTIS-200711236US

PATIENT
  Age: 50 Year
  Sex: Female

DRUGS (2)
  1. ALLEGRA-D 12 HOUR [Suspect]
     Dosage: DOSE: 1 TAB
     Route: 048
  2. SUDAFED 12 HOUR [Suspect]
     Indication: SINUS DISORDER
     Dosage: DOSE: 1 TAB

REACTIONS (1)
  - ANGLE CLOSURE GLAUCOMA [None]
